FAERS Safety Report 11673740 (Version 1)
Quarter: 2015Q4

REPORT INFORMATION
  Report Type: Spontaneous
  Country: US (occurrence: None)
  Receive Date: 20151027
  Receipt Date: 20151027
  Transmission Date: 20160304
  Serious: Yes (Hospitalization)
  Sender: FDA-Public Use
  Company Number: None

PATIENT
  Age: 59 Year
  Sex: Female
  Weight: 67.7 kg

DRUGS (2)
  1. ETOPOSIDE (VP-16) [Suspect]
     Active Substance: ETOPOSIDE
     Dates: end: 20151002
  2. CISPLATIN. [Suspect]
     Active Substance: CISPLATIN
     Dates: end: 20150928

REACTIONS (4)
  - Cough [None]
  - Muscle spasms [None]
  - Pyrexia [None]
  - Fatigue [None]

NARRATIVE: CASE EVENT DATE: 20151022
